FAERS Safety Report 19596090 (Version 2)
Quarter: 2021Q4

REPORT INFORMATION
  Report Type: Spontaneous
  Country: IT (occurrence: IT)
  Receive Date: 20210723
  Receipt Date: 20211028
  Transmission Date: 20220303
  Serious: Yes (Other)
  Sender: FDA-Public Use
  Company Number: IT-SUN PHARMACEUTICAL INDUSTRIES LTD-2021R1-304788

PATIENT
  Age: 65 Year
  Sex: Female

DRUGS (1)
  1. CAPECITABINE [Suspect]
     Active Substance: CAPECITABINE
     Indication: Hepatic cirrhosis
     Dosage: 1000 MILLIGRAM, DAILY
     Route: 048

REACTIONS (2)
  - Hyperbilirubinaemia [Recovering/Resolving]
  - Thrombocytopenia [Recovering/Resolving]
